FAERS Safety Report 7251645-5 (Version None)
Quarter: 2011Q1

REPORT INFORMATION
  Report Type: 
  Country: None (occurrence: None)
  Receive Date: 20110128
  Receipt Date: 20110124
  Transmission Date: 20110831
  Serious: Yes (Other)
  Sender: FDA-Public Use
  Company Number: JP-PFIZER INC-2010175978

PATIENT
  Age: 69 Year
  Sex: Female

DRUGS (1)
  1. CELECOXIB [Suspect]
     Indication: ANALGESIC THERAPY
     Dosage: 100 MG, 2X/DAY
     Dates: start: 20101217

REACTIONS (2)
  - PITUITARY TUMOUR BENIGN [None]
  - HYPOGLYCAEMIA [None]
